FAERS Safety Report 17758927 (Version 2)
Quarter: 2020Q2

REPORT INFORMATION
  Report Type: Report from Study
  Country: US (occurrence: US)
  Receive Date: 20200508
  Receipt Date: 20200521
  Transmission Date: 20200714
  Serious: Yes (Hospitalization)
  Sender: FDA-Public Use
  Company Number: US-BIOGEN-2020BI00870719

PATIENT
  Age: 28 Year
  Sex: Female

DRUGS (2)
  1. TECFIDERA [Suspect]
     Active Substance: DIMETHYL FUMARATE
     Dosage: MAINTENANCE DOSE
     Route: 048
     Dates: start: 20200418
  2. TECFIDERA [Suspect]
     Active Substance: DIMETHYL FUMARATE
     Indication: MULTIPLE SCLEROSIS
     Dosage: STARTING DOSE
     Route: 048
     Dates: start: 20200411, end: 20200417

REACTIONS (4)
  - Abdominal pain upper [Unknown]
  - Colitis [Not Recovered/Not Resolved]
  - Product dose omission [Unknown]
  - Gastritis [Unknown]

NARRATIVE: CASE EVENT DATE: 20200427
